FAERS Safety Report 6435883-7 (Version None)
Quarter: 2009Q4

REPORT INFORMATION
  Report Type: 
  Country: None (occurrence: None)
  Receive Date: 20091111
  Receipt Date: 20091104
  Transmission Date: 20100525
  Serious: No
  Sender: FDA-Public Use
  Company Number: US-B.I. PHARMACEUTICALS,INC./RIDGEFIELD-2009-BP-11426BP

PATIENT
  Sex: Female

DRUGS (4)
  1. SPIRIVA [Suspect]
     Indication: CHRONIC OBSTRUCTIVE PULMONARY DISEASE
     Dosage: 18 MCG
     Route: 055
     Dates: start: 20071001
  2. PRAVASTATIN [Concomitant]
  3. ENALAPRIL [Concomitant]
  4. FLUXOTINE [Concomitant]

REACTIONS (2)
  - URINARY TRACT INFECTION [None]
  - URINE FLOW DECREASED [None]
